FAERS Safety Report 9713316 (Version 1)
Quarter: 2013Q4

REPORT INFORMATION
  Report Type: Spontaneous
  Country: JP (occurrence: JP)
  Receive Date: 20131126
  Receipt Date: 20131126
  Transmission Date: 20140711
  Serious: Yes (Other)
  Sender: FDA-Public Use
  Company Number: JP-MYLANLABS-2013S1025727

PATIENT
  Age: 56 Year
  Sex: Female

DRUGS (7)
  1. REMIFENTANIL [Suspect]
     Indication: INDUCTION OF ANAESTHESIA
     Dosage: 0.5 MICROG/KG/MIN
     Route: 065
  2. REMIFENTANIL [Suspect]
     Indication: MAINTENANCE OF ANAESTHESIA
     Dosage: 0.5 MICROG/KG/MIN
     Route: 065
  3. REMIFENTANIL [Suspect]
     Indication: INDUCTION OF ANAESTHESIA
     Dosage: 0.15-0.2 MICROG/KG/MIN
     Route: 065
  4. REMIFENTANIL [Suspect]
     Indication: MAINTENANCE OF ANAESTHESIA
     Dosage: 0.15-0.2 MICROG/KG/MIN
     Route: 065
  5. DESFLURANE [Suspect]
     Indication: MAINTENANCE OF ANAESTHESIA
     Dosage: 3-5%
     Route: 065
  6. THIOPENTAL SODIUM [Concomitant]
     Indication: INDUCTION OF ANAESTHESIA
     Route: 065
  7. ROCURONIUM BROMIDE [Concomitant]
     Route: 065

REACTIONS (1)
  - Vocal cord disorder [Recovered/Resolved]
